FAERS Safety Report 9826945 (Version 1)
Quarter: 2014Q1

REPORT INFORMATION
  Report Type: Spontaneous
  Country: US (occurrence: US)
  Receive Date: 20140117
  Receipt Date: 20140117
  Transmission Date: 20141002
  Serious: No
  Sender: FDA-Public Use
  Company Number: US-GLAXOSMITHKLINE-A1020508A

PATIENT
  Age: 53 Year
  Sex: Female

DRUGS (2)
  1. PROMACTA [Suspect]
     Indication: IMMUNE THROMBOCYTOPENIC PURPURA
     Dosage: 50MG PER DAY
     Route: 048
     Dates: start: 20130306
  2. PREDNISONE [Concomitant]

REACTIONS (10)
  - Platelet count decreased [Unknown]
  - Nasopharyngitis [Unknown]
  - Multiple allergies [Unknown]
  - Headache [Unknown]
  - Throat irritation [Unknown]
  - Respiratory tract congestion [Unknown]
  - Alopecia [Unknown]
  - Arthropod bite [Not Recovered/Not Resolved]
  - Joint injury [Unknown]
  - Therapeutic response unexpected [Unknown]
